FAERS Safety Report 5568417-X (Version None)
Quarter: 2007Q4

REPORT INFORMATION
  Report Type: 
  Country: None (occurrence: None)
  Receive Date: 20071220
  Receipt Date: 20071214
  Transmission Date: 20080405
  Serious: Yes (Hospitalization, Other)
  Sender: FDA-Public Use
  Company Number: AU-AVENTIS-200720358GDDC

PATIENT
  Age: 23 Year
  Sex: Male

DRUGS (5)
  1. FLAGYL [Suspect]
     Dosage: DOSE: UNK
  2. NORFLOXACIN [Concomitant]
     Indication: GASTROENTERITIS
  3. VENLAFAXINE HCL EXTENDED-RELEASE [Concomitant]
  4. AMISULPRIDE [Concomitant]
  5. RANITIDINE HCL [Concomitant]

REACTIONS (1)
  - PANCREATITIS [None]
